FAERS Safety Report 8257330-5 (Version None)
Quarter: 2012Q2

REPORT INFORMATION
  Report Type: 
  Country: None (occurrence: None)
  Receive Date: 20120403
  Receipt Date: 20120322
  Transmission Date: 20120825
  Serious: Yes (Death, Hospitalization)
  Sender: FDA-Public Use
  Company Number: US-JNJFOC-20120205443

PATIENT
  Sex: Female
  Weight: 100 kg

DRUGS (7)
  1. COUMADIN [Concomitant]
  2. IMURAN [Concomitant]
     Indication: CROHN'S DISEASE
  3. REMICADE [Suspect]
     Indication: CROHN'S DISEASE
     Dosage: ON INFLIXIMAB FOR 8 YEARS
     Route: 042
     Dates: start: 20010101, end: 20110901
  4. NORVASC [Concomitant]
     Indication: HYPERTENSION
  5. PENTASA [Concomitant]
     Indication: CROHN'S DISEASE
  6. ANTIHYPERTENSIVE [Concomitant]
  7. LISINOPRIL [Concomitant]

REACTIONS (1)
  - UTERINE CANCER [None]
